FAERS Safety Report 19225040 (Version 1)
Quarter: 2021Q2

REPORT INFORMATION
  Report Type: Spontaneous
  Country: US (occurrence: US)
  Receive Date: 20210505
  Receipt Date: 20210505
  Transmission Date: 20210717
  Serious: No
  Sender: FDA-Public Use
  Company Number: US-ROCHE-2690001

PATIENT
  Sex: Female

DRUGS (4)
  1. ESBRIET [Suspect]
     Active Substance: PIRFENIDONE
     Indication: IDIOPATHIC PULMONARY FIBROSIS
     Dosage: 1 TABLET THREE TIMES DAILY (WEEK 1)
     Route: 048
     Dates: start: 20200921
  2. ESBRIET [Suspect]
     Active Substance: PIRFENIDONE
     Dosage: 2 TABLETS THREE TIMES  DAILY (WEEK 2)
     Route: 048
     Dates: start: 20200921
  3. ESBRIET [Suspect]
     Active Substance: PIRFENIDONE
     Dosage: 3 THREE TIMES DAILY
     Route: 048
     Dates: start: 20200917
  4. ESBRIET [Suspect]
     Active Substance: PIRFENIDONE
     Dosage: THEN 3 TABLETS THREE TIMES DAILY
     Route: 048

REACTIONS (7)
  - Nausea [Unknown]
  - Decreased appetite [Not Recovered/Not Resolved]
  - Malaise [Not Recovered/Not Resolved]
  - Fatigue [Not Recovered/Not Resolved]
  - Oxygen saturation decreased [Unknown]
  - Vomiting [Unknown]
  - Dyspnoea [Not Recovered/Not Resolved]
